FAERS Safety Report 6467383-2 (Version None)
Quarter: 2009Q4

REPORT INFORMATION
  Report Type: 
  Country: None (occurrence: None)
  Receive Date: 20091202
  Receipt Date: 20091124
  Transmission Date: 20100525
  Serious: Yes (Other)
  Sender: FDA-Public Use
  Company Number: A0826652A

PATIENT
  Age: 38 Year
  Sex: Female

DRUGS (4)
  1. TYKERB [Suspect]
     Indication: BREAST CANCER
     Dosage: 1000MG PER DAY
     Route: 048
     Dates: start: 20091001
  2. HERCEPTIN [Concomitant]
  3. MULTI-VITAMIN [Concomitant]
  4. PROBIOTIC [Concomitant]

REACTIONS (4)
  - COUGH [None]
  - DYSPNOEA [None]
  - ILL-DEFINED DISORDER [None]
  - PLEURAL EFFUSION [None]
